FAERS Safety Report 4326358-X (Version None)
Quarter: 2004Q1

REPORT INFORMATION
  Report Type: 
  Country: None (occurrence: None)
  Receive Date: 20040329
  Receipt Date: 20040329
  Transmission Date: 20041129
  Serious: Yes (Death)
  Sender: FDA-Public Use
  Company Number: None

PATIENT
  Age: 35 Year
  Sex: Female
  Weight: 81.6475 kg

DRUGS (2)
  1. PAXIL [Suspect]
     Indication: SCHIZOAFFECTIVE DISORDER
     Dates: start: 20030323, end: 20030427
  2. PAXIL [Suspect]
     Indication: SUICIDAL IDEATION
     Dates: start: 20030323, end: 20030427

REACTIONS (1)
  - COMPLETED SUICIDE [None]
